FAERS Safety Report 6403434-9 (Version None)
Quarter: 2009Q4

REPORT INFORMATION
  Report Type: 
  Country: None (occurrence: None)
  Receive Date: 20091016
  Receipt Date: 20091006
  Transmission Date: 20100525
  Serious: Yes (Death)
  Sender: FDA-Public Use
  Company Number: ZA-JNJFOC-20091002382

PATIENT
  Sex: Female
  Weight: 48 kg

DRUGS (1)
  1. REVELLEX [Suspect]
     Indication: CROHN'S DISEASE
     Route: 042
     Dates: start: 20080805, end: 20090825

REACTIONS (1)
  - DEATH [None]
